FAERS Safety Report 15625978 (Version 1)
Quarter: 2018Q4

REPORT INFORMATION
  Report Type: Spontaneous
  Country: AE (occurrence: AE)
  Receive Date: 20181116
  Receipt Date: 20181116
  Transmission Date: 20190205
  Serious: Yes (Other)
  Sender: FDA-Public Use
  Company Number: AE-JNJFOC-20181100927

PATIENT

DRUGS (4)
  1. PARACETAMOL [Suspect]
     Active Substance: ACETAMINOPHEN
     Route: 065
  2. PARACETAMOL [Suspect]
     Active Substance: ACETAMINOPHEN
     Indication: PROCEDURAL PAIN
     Route: 065
  3. IBUPROFEN. [Suspect]
     Active Substance: IBUPROFEN
     Indication: PROCEDURAL PAIN
     Route: 048
  4. PREDNISOLONE. [Suspect]
     Active Substance: PREDNISOLONE
     Indication: PROCEDURAL PAIN
     Dosage: DOSE 1 MG/KG/DAY WITH A MAXIMUM OF 60 MG/DAY IN THREE DIVIDED DOSES FOR 10 DAYS
     Route: 065

REACTIONS (6)
  - Nausea [Unknown]
  - Off label use [Unknown]
  - Post procedural haemorrhage [Unknown]
  - Vomiting [Unknown]
  - Overdose [Unknown]
  - Product use in unapproved indication [Unknown]
